FAERS Safety Report 9434776 (Version 2)
Quarter: 2013Q3

REPORT INFORMATION
  Report Type: Spontaneous
  Country: CN (occurrence: CN)
  Receive Date: 20130801
  Receipt Date: 20130807
  Transmission Date: 20140515
  Serious: Yes (Other)
  Sender: FDA-Public Use
  Company Number: CN-PFIZER INC-2013220148

PATIENT
  Age: 58 Year
  Sex: Female
  Weight: 70 kg

DRUGS (3)
  1. PHARMORUBICIN [Suspect]
     Indication: BREAST CANCER
     Dosage: 140 MG, ONCE DAILY
     Route: 041
     Dates: start: 20120702, end: 20120702
  2. ENDOXAN [Concomitant]
     Indication: BREAST CANCER
     Dosage: 900 MG, UNK
     Route: 042
     Dates: start: 20120702
  3. NORMAL SALINE [Concomitant]
     Indication: BREAST CANCER
     Dosage: 145 ML, UNK
     Dates: start: 20120702

REACTIONS (2)
  - White blood cell count decreased [Recovering/Resolving]
  - Granulocytopenia [Recovering/Resolving]
